FAERS Safety Report 7651822-5 (Version None)
Quarter: 2011Q3

REPORT INFORMATION
  Report Type: 
  Country: None (occurrence: None)
  Receive Date: 20110803
  Receipt Date: 20110725
  Transmission Date: 20111222
  Serious: Yes (Hospitalization)
  Sender: FDA-Public Use
  Company Number: FR-AMGEN-FRASP2011038288

PATIENT
  Age: 55 Year
  Sex: Female
  Weight: 52 kg

DRUGS (7)
  1. CYTOTEC [Suspect]
     Indication: PEPTIC ULCER
     Dosage: 200.0 UG, 2X/DAY
     Route: 048
     Dates: start: 20070206, end: 20070207
  2. PANTOPRAZOLE SODIUM [Suspect]
     Indication: PEPTIC ULCER
     Dosage: 1.0 DF, 1X/DAY
     Route: 048
     Dates: start: 20070205, end: 20070207
  3. EFFEXOR [Suspect]
     Indication: DEPRESSION
     Dosage: 50.0 MG, 2X/DAY
     Route: 048
     Dates: start: 20061115, end: 20070207
  4. CITALOPRAM HYDROBROMIDE [Suspect]
     Dosage: UNK
     Dates: start: 20070209
  5. ENBREL [Suspect]
     Indication: POLYARTHRITIS
     Dosage: 1.0 DF, 2X/WEEK
     Route: 058
     Dates: start: 20030605, end: 20070207
  6. MORPHINE SULFATE [Concomitant]
     Dosage: UNK
     Route: 048
     Dates: end: 20070211
  7. DICLOFENAC SODIUM [Concomitant]
     Dosage: UNK
     Route: 048
     Dates: start: 20060615, end: 20070206

REACTIONS (3)
  - MENINGISM [None]
  - NEUTROPENIA [None]
  - PYREXIA [None]
